FAERS Safety Report 24808341 (Version 1)
Quarter: 2025Q1

REPORT INFORMATION
  Report Type: Spontaneous
  Country: US (occurrence: US)
  Receive Date: 20250106
  Receipt Date: 20250106
  Transmission Date: 20250409
  Serious: Yes (Hospitalization, Other)
  Sender: ZYDUS PHARM
  Company Number: US-CADILA HEALTHCARE LIMITED-US-ZYDUS-117093

PATIENT

DRUGS (7)
  1. ANASTROZOLE [Suspect]
     Active Substance: ANASTROZOLE
     Indication: Intentional product misuse
     Route: 065
  2. LIOTHYRONINE [Suspect]
     Active Substance: LIOTHYRONINE
     Indication: Intentional product misuse
     Route: 065
  3. CLENBUTEROL [Suspect]
     Active Substance: CLENBUTEROL
     Indication: Intentional product misuse
     Route: 065
  4. CLOMIPHENE [Suspect]
     Active Substance: CLOMIPHENE
     Indication: Intentional product misuse
     Route: 065
  5. TESTOSTERONE CYPIONATE [Suspect]
     Active Substance: TESTOSTERONE CYPIONATE
     Indication: Intentional product misuse
     Route: 065
  6. TESTOSTERONE ENANTHATE [Suspect]
     Active Substance: TESTOSTERONE ENANTHATE
     Indication: Intentional product misuse
     Route: 065
  7. DEXAMETHASONE [Concomitant]
     Active Substance: DEXAMETHASONE
     Indication: Product used for unknown indication
     Route: 065

REACTIONS (6)
  - Acute respiratory failure [Recovering/Resolving]
  - Cardiac failure acute [Recovering/Resolving]
  - Cardiogenic shock [Recovering/Resolving]
  - Hypothalamo-pituitary disorder [Recovering/Resolving]
  - Myocarditis [Recovering/Resolving]
  - Intentional product misuse [Unknown]
